FAERS Safety Report 21604854 (Version 3)
Quarter: 2022Q4

REPORT INFORMATION
  Report Type: Spontaneous
  Country: US (occurrence: US)
  Receive Date: 20221116
  Receipt Date: 20221222
  Transmission Date: 20230113
  Serious: Yes (Other)
  Sender: FDA-Public Use
  Company Number: US-AMERICAN REGENT INC-2022003298

PATIENT
  Age: 20 Year
  Sex: Female

DRUGS (3)
  1. VENOFER [Suspect]
     Active Substance: IRON SUCROSE
     Indication: Iron metabolism disorder
     Dosage: 300 MILLIGRAM IN 250 ML 0.9% SODIUM CHLORIDE
     Route: 042
     Dates: start: 20221108, end: 20221108
  2. VENOFER [Suspect]
     Active Substance: IRON SUCROSE
     Indication: Iron deficiency
     Dosage: UNK
  3. VENOFER [Suspect]
     Active Substance: IRON SUCROSE
     Dosage: UNK

REACTIONS (7)
  - Pain [Recovered/Resolved]
  - Screaming [Recovered/Resolved]
  - Mental disorder [Recovered/Resolved]
  - Skin disorder [Recovered/Resolved]
  - Hypersensitivity [Recovered/Resolved]
  - Loss of consciousness [Recovered/Resolved]
  - Product quality issue [Unknown]

NARRATIVE: CASE EVENT DATE: 20221108
